FAERS Safety Report 4557030-9 (Version None)
Quarter: 2005Q1

REPORT INFORMATION
  Report Type: 
  Country: None (occurrence: None)
  Receive Date: 20050103
  Receipt Date: 20040907
  Transmission Date: 20050727
  Serious: Yes (Other)
  Sender: FDA-Public Use
  Company Number: 2004UW18732

PATIENT
  Age: 78 Year
  Sex: Female
  Weight: 76.2043 kg

DRUGS (6)
  1. CRESTOR [Suspect]
     Indication: BLOOD CHOLESTEROL INCREASED
     Dosage: 10 MG QD PO
     Route: 048
     Dates: start: 20040801
  2. COUMADIN [Concomitant]
  3. HYDROCHLOROTHIAZIDE [Concomitant]
  4. CALCIUM GLUCONATE [Concomitant]
  5. VITAMIN E [Concomitant]
  6. PLENDIL [Concomitant]

REACTIONS (1)
  - POLLAKIURIA [None]
